FAERS Safety Report 6994552-5 (Version None)
Quarter: 2010Q3

REPORT INFORMATION
  Report Type: 
  Country: None (occurrence: None)
  Receive Date: 20100915
  Receipt Date: 20100915
  Transmission Date: 20110219
  Serious: Yes (Hospitalization)
  Sender: FDA-Public Use
  Company Number: None

PATIENT
  Age: 71 Year
  Sex: Male
  Weight: 118 kg

DRUGS (1)
  1. PIOGLITAZONE [Suspect]
     Indication: CARDIAC FAILURE CONGESTIVE
     Dosage: 1 TAB EVERY DAY PO
     Route: 048
     Dates: start: 20091106, end: 20091214

REACTIONS (3)
  - BLOOD GLUCOSE INCREASED [None]
  - CARDIAC FAILURE CONGESTIVE [None]
  - CHRONIC OBSTRUCTIVE PULMONARY DISEASE [None]
